FAERS Safety Report 25402458 (Version 1)
Quarter: 2025Q2

REPORT INFORMATION
  Report Type: Spontaneous
  Country: CN (occurrence: CN)
  Receive Date: 20250605
  Receipt Date: 20250605
  Transmission Date: 20250717
  Serious: Yes (Hospitalization)
  Sender: PFIZER
  Company Number: CN-PFIZER INC-PV202500066581

PATIENT
  Age: 17 Year
  Sex: Male
  Weight: 60 kg

DRUGS (10)
  1. LINEZOLID [Suspect]
     Active Substance: LINEZOLID
     Indication: Pulmonary tuberculosis
     Dosage: 0.6 G, 1X/DAY
     Route: 048
     Dates: start: 20250321, end: 20250421
  2. PROTIONAMIDE [Suspect]
     Active Substance: PROTIONAMIDE
     Indication: Pulmonary tuberculosis
     Dosage: 0.2 G, 3X/DAY
     Route: 048
     Dates: start: 20250321, end: 20250421
  3. CYCLOSERINE [Suspect]
     Active Substance: CYCLOSERINE
     Indication: Pulmonary tuberculosis
     Dosage: 0.25 G, 2X/DAY
     Route: 048
     Dates: start: 20250321, end: 20250421
  4. CLOFAZIMINE [Suspect]
     Active Substance: CLOFAZIMINE
     Indication: Pulmonary tuberculosis
     Dosage: 2 DF, 2X/DAY
     Route: 048
     Dates: start: 20250321, end: 20250421
  5. PYRAZINAMIDE [Suspect]
     Active Substance: PYRAZINAMIDE
     Indication: Pulmonary tuberculosis
     Dosage: 1.5 G, 1X/DAY
     Route: 048
     Dates: start: 20250321, end: 20250421
  6. ETHAMBUTOL [Concomitant]
     Active Substance: ETHAMBUTOL HYDROCHLORIDE
     Dosage: 0.75 G, 1X/DAY
  7. LEVOFLOXACIN [Concomitant]
     Active Substance: LEVOFLOXACIN
     Dosage: 0.5 G, 1X/DAY
  8. VITAMIN B [Concomitant]
     Active Substance: VITAMIN B
     Dosage: 650 MG, 2X/DAY
  9. SILYBIN MEGLUMINE [Concomitant]
     Dosage: 100 MG, 3X/DAY
  10. BENZBROMARONE [Concomitant]
     Active Substance: BENZBROMARONE
     Dosage: 50 MG, 1X/DAY
     Route: 048

REACTIONS (10)
  - Hepatic enzyme increased [Recovering/Resolving]
  - Blood uric acid increased [Recovering/Resolving]
  - Nausea [Recovering/Resolving]
  - Decreased appetite [Recovering/Resolving]
  - Drug-induced liver injury [Recovering/Resolving]
  - Cough [Recovering/Resolving]
  - Productive cough [Recovering/Resolving]
  - Chest pain [Recovering/Resolving]
  - Back pain [Recovering/Resolving]
  - Off label use [Unknown]

NARRATIVE: CASE EVENT DATE: 20250321
